FAERS Safety Report 22231115 (Version 1)
Quarter: 2023Q2

REPORT INFORMATION
  Report Type: Spontaneous
  Country: US (occurrence: US)
  Receive Date: 20230420
  Receipt Date: 20230420
  Transmission Date: 20230722
  Serious: No
  Sender: FDA-Public Use
  Company Number: US-ELI_LILLY_AND_COMPANY-US202304006459

PATIENT
  Sex: Female

DRUGS (1)
  1. EMGALITY [Suspect]
     Active Substance: GALCANEZUMAB-GNLM
     Indication: Product used for unknown indication
     Dosage: 120 MG, MONTHLY (1/M)
     Route: 065

REACTIONS (10)
  - Withdrawal syndrome [Unknown]
  - Confusional state [Unknown]
  - Hypokinesia [Unknown]
  - Skin burning sensation [Unknown]
  - Cold sweat [Unknown]
  - Headache [Unknown]
  - Vision blurred [Unknown]
  - Depression [Unknown]
  - Anxiety [Unknown]
  - Disturbance in attention [Unknown]
